FAERS Safety Report 18821401 (Version 1)
Quarter: 2021Q1

REPORT INFORMATION
  Report Type: Spontaneous
  Country: DK (occurrence: DK)
  Receive Date: 20210201
  Receipt Date: 20210201
  Transmission Date: 20210419
  Serious: Yes (Hospitalization, Other)
  Sender: FDA-Public Use
  Company Number: DK-PFIZER INC-2021073403

PATIENT
  Age: 91 Year
  Sex: Female

DRUGS (5)
  1. PHENERGAN [Suspect]
     Active Substance: PROMETHAZINE HYDROCHLORIDE
     Indication: INSOMNIA
     Dosage: 50 MG, 1X/DAY
     Route: 048
     Dates: start: 20180706
  2. LYRICA [Suspect]
     Active Substance: PREGABALIN
     Indication: SEDATIVE THERAPY
     Dosage: 8 ML, 1X/DAY
     Route: 048
     Dates: start: 2018
  3. MIANSERIN MYLAN [Suspect]
     Active Substance: MIANSERIN
     Indication: DEPRESSION
     Dosage: 30 MG, 1X/DAY
     Route: 048
     Dates: start: 20131218
  4. CITALOPRAM ORIFARM [Suspect]
     Active Substance: CITALOPRAM HYDROBROMIDE
     Indication: DEPRESSION
     Dosage: 10 MG, 1X/DAY
     Route: 048
     Dates: start: 2018
  5. APOZEPAM [Suspect]
     Active Substance: DIAZEPAM
     Indication: SEDATIVE THERAPY
     Dosage: 2 MG IN THE MORNING AND MIDDAY, 3 MG IN THE EVENING
     Route: 048
     Dates: start: 20180615

REACTIONS (6)
  - White blood cell count increased [Unknown]
  - Off label use [Unknown]
  - Anaemia [Not Recovered/Not Resolved]
  - Presyncope [Unknown]
  - Fall [Unknown]
  - Fatigue [Unknown]

NARRATIVE: CASE EVENT DATE: 202101
